FAERS Safety Report 25769054 (Version 1)
Quarter: 2025Q3

REPORT INFORMATION
  Report Type: Spontaneous
  Country: TW (occurrence: TW)
  Receive Date: 20250905
  Receipt Date: 20250905
  Transmission Date: 20251021
  Serious: Yes (Death, Other)
  Sender: AMGEN
  Company Number: TW-AMGEN-TWNSP2025172959

PATIENT

DRUGS (2)
  1. BEVACIZUMAB [Suspect]
     Active Substance: BEVACIZUMAB
     Indication: Hepatocellular carcinoma
     Dosage: 15 MILLIGRAM/KILOGRAM, Q3WK
     Route: 065
  2. ATEZOLIZUMAB [Suspect]
     Active Substance: ATEZOLIZUMAB
     Indication: Hepatocellular carcinoma
     Route: 065

REACTIONS (20)
  - Death [Fatal]
  - Hepatitis [Unknown]
  - Skin reaction [Unknown]
  - Pneumonitis [Unknown]
  - Colitis [Unknown]
  - Encephalitis [Unknown]
  - Gastrointestinal haemorrhage [Unknown]
  - Thrombosis [Unknown]
  - Pancreatitis [Unknown]
  - Hepatocellular carcinoma [Unknown]
  - Thrombotic microangiopathy [Unknown]
  - Thrombophlebitis [Unknown]
  - Fatigue [Unknown]
  - Hypertension [Unknown]
  - Arthritis [Unknown]
  - Thyroid disorder [Unknown]
  - Proteinuria [Unknown]
  - Diarrhoea [Unknown]
  - Therapy partial responder [Unknown]
  - Off label use [Unknown]
